FAERS Safety Report 9504027 (Version 1)
Quarter: 2013Q3

REPORT INFORMATION
  Report Type: Spontaneous
  Country: US (occurrence: None)
  Receive Date: 20130905
  Receipt Date: 20130905
  Transmission Date: 20140515
  Serious: No
  Sender: FDA-Public Use
  Company Number: None

PATIENT
  Age: 22 Year
  Sex: Male
  Weight: 63.5 kg

DRUGS (6)
  1. PRISTIQ [Suspect]
     Indication: DEPRESSION
     Route: 048
     Dates: start: 20130501, end: 20130714
  2. MULTI-VITAMINS [Concomitant]
  3. KRILL OIL [Concomitant]
  4. ZYRTEC [Concomitant]
  5. ALLEGRA [Concomitant]
  6. VITAMIN D [Concomitant]

REACTIONS (8)
  - Depression [None]
  - Suicidal ideation [None]
  - Decreased appetite [None]
  - Drug withdrawal syndrome [None]
  - Abdominal pain [None]
  - Nausea [None]
  - Headache [None]
  - Insomnia [None]
